FAERS Safety Report 9356121 (Version 1)
Quarter: 2013Q2

REPORT INFORMATION
  Report Type: Spontaneous
  Country: GB (occurrence: GB)
  Receive Date: 20130619
  Receipt Date: 20130619
  Transmission Date: 20140414
  Serious: Yes (Other)
  Sender: FDA-Public Use
  Company Number: GB-TEVA-412945ISR

PATIENT
  Age: 40 Year
  Sex: 0
  Weight: 74.38 kg

DRUGS (2)
  1. TRIMETHOPRIM [Suspect]
     Indication: CYSTITIS
     Route: 048
     Dates: start: 20130528
  2. OMEPRAZOLE [Concomitant]

REACTIONS (5)
  - Headache [Recovering/Resolving]
  - Malaise [Recovering/Resolving]
  - Dizziness [Recovering/Resolving]
  - Photosensitivity reaction [Recovering/Resolving]
  - Balance disorder [Recovering/Resolving]
